FAERS Safety Report 24257909 (Version 1)
Quarter: 2024Q3

REPORT INFORMATION
  Report Type: Spontaneous
  Country: US (occurrence: US)
  Receive Date: 20240828
  Receipt Date: 20240828
  Transmission Date: 20241016
  Serious: No
  Sender: MYLAN
  Company Number: US-MYLANLABS-2024M1077341

PATIENT
  Sex: Male
  Weight: 81.65 kg

DRUGS (1)
  1. WIXELA INHUB [Suspect]
     Active Substance: FLUTICASONE PROPIONATE\SALMETEROL XINAFOATE
     Indication: Chronic obstructive pulmonary disease
     Dosage: 250/50 MICROGRAM, BID (TWICE A DAY)
     Route: 055
     Dates: start: 2024

REACTIONS (3)
  - Device issue [Unknown]
  - Device mechanical issue [Unknown]
  - Product dose omission issue [Unknown]
